FAERS Safety Report 9798439 (Version 1)
Quarter: 2014Q1

REPORT INFORMATION
  Report Type: Spontaneous
  Country: GB (occurrence: GB)
  Receive Date: 20140106
  Receipt Date: 20140106
  Transmission Date: 20141002
  Serious: Yes (Death)
  Sender: FDA-Public Use
  Company Number: GB-PFIZER INC-2014000464

PATIENT
  Age: 72 Year
  Sex: Male
  Weight: 125 kg

DRUGS (3)
  1. SUNITINIB MALATE [Suspect]
     Indication: RENAL CANCER METASTATIC
     Dosage: 37.5 MG, UNK
     Route: 048
     Dates: start: 2011, end: 201309
  2. OMEPRAZOLE [Concomitant]
     Dosage: 20 MG, UNK
  3. THYROXINE [Concomitant]
     Dosage: 50 UG, UNK

REACTIONS (2)
  - Haemolytic uraemic syndrome [Fatal]
  - Hepatorenal syndrome [Fatal]
